FAERS Safety Report 6384380-6 (Version None)
Quarter: 2009Q4

REPORT INFORMATION
  Report Type: 
  Country: None (occurrence: None)
  Receive Date: 20091001
  Receipt Date: 20090923
  Transmission Date: 20100525
  Serious: Yes (Other)
  Sender: FDA-Public Use
  Company Number: CA-JNJFOC-20090907560

PATIENT
  Sex: Male
  Weight: 84.8 kg

DRUGS (7)
  1. REMICADE [Suspect]
     Indication: RHEUMATOID ARTHRITIS
     Route: 042
     Dates: start: 20020101, end: 20090727
  2. NOVO-GESIC FORTE [Concomitant]
  3. METHOTREXATE [Concomitant]
     Route: 048
  4. LIPITOR [Concomitant]
  5. NEXIUM [Concomitant]
  6. ASAPHEN [Concomitant]
  7. BRICANYL [Concomitant]

REACTIONS (1)
  - GRANULOMA [None]
